FAERS Safety Report 14483662 (Version 1)
Quarter: 2018Q1

REPORT INFORMATION
  Report Type: Spontaneous
  Country: BR (occurrence: BR)
  Receive Date: 20180205
  Receipt Date: 20180205
  Transmission Date: 20180509
  Serious: Yes (Other)
  Sender: FDA-Public Use
  Company Number: BR-009507513-1801BRA014929

PATIENT
  Age: 34 Year
  Sex: Female
  Weight: 52 kg

DRUGS (2)
  1. NUVARING [Suspect]
     Active Substance: ETHINYL ESTRADIOL\ETONOGESTREL
     Indication: MENSTRUAL CYCLE MANAGEMENT
  2. NUVARING [Suspect]
     Active Substance: ETHINYL ESTRADIOL\ETONOGESTREL
     Indication: CONTRACEPTION
     Dosage: 1 VAGINAL RING, Q3W
     Route: 067
     Dates: start: 2013

REACTIONS (6)
  - Device difficult to use [Unknown]
  - Multiple sclerosis [Unknown]
  - Device expulsion [Unknown]
  - Product use in unapproved indication [Unknown]
  - Device expulsion [Unknown]
  - Menstruation irregular [Not Recovered/Not Resolved]

NARRATIVE: CASE EVENT DATE: 2013
